FAERS Safety Report 5713727-6 (Version None)
Quarter: 2008Q2

REPORT INFORMATION
  Report Type: 
  Country: None (occurrence: None)
  Receive Date: 20080418
  Receipt Date: 20080409
  Transmission Date: 20081010
  Serious: Yes (Hospitalization)
  Sender: FDA-Public Use
  Company Number: 2008US001055

PATIENT
  Age: 52 Year
  Sex: Female

DRUGS (6)
  1. PROGRAF [Suspect]
     Indication: RENAL TRANSPLANT
     Dosage: 6 MG, UID/QD, ORAL
     Route: 048
  2. PREDNISONE TAB [Concomitant]
  3. MICOPHENOLATE [Concomitant]
  4. LOSARTAN POTASSIUM [Concomitant]
  5. LOVASTATINE [Concomitant]
  6. OMEGA 3 (FISH OIL) [Concomitant]

REACTIONS (1)
  - KNEE OPERATION [None]
